FAERS Safety Report 7056493-7 (Version None)
Quarter: 2010Q4

REPORT INFORMATION
  Report Type: 
  Country: None (occurrence: None)
  Receive Date: 20101021
  Receipt Date: 20101013
  Transmission Date: 20110411
  Serious: Yes (Other)
  Sender: FDA-Public Use
  Company Number: CL-PFIZER INC-2010115217

PATIENT
  Sex: Female

DRUGS (2)
  1. LIPITOR [Suspect]
     Indication: BLOOD CHOLESTEROL INCREASED
     Dosage: 20 MG, 1X/DAY
     Route: 048
     Dates: start: 20100907, end: 20100909
  2. LIPITOR [Suspect]
     Indication: BLOOD TRIGLYCERIDES INCREASED

REACTIONS (3)
  - ABDOMINAL PAIN [None]
  - NAUSEA [None]
  - RENAL PAIN [None]
